FAERS Safety Report 9237506 (Version 2)
Quarter: 2013Q2

REPORT INFORMATION
  Report Type: Spontaneous
  Country: US (occurrence: US)
  Receive Date: 20130417
  Receipt Date: 20130523
  Transmission Date: 20140414
  Serious: Yes (Hospitalization)
  Sender: FDA-Public Use
  Company Number: US-MERCK-1304USA007563

PATIENT
  Age: 75 Year
  Sex: Female

DRUGS (2)
  1. JANUMET [Suspect]
     Indication: DIABETES MELLITUS
     Dosage: 2 TABLETS, ONCE A DAY
     Route: 048
     Dates: start: 201202, end: 20130312
  2. ZETIA [Concomitant]
     Route: 048

REACTIONS (2)
  - Eye operation [Not Recovered/Not Resolved]
  - Blood creatinine increased [Not Recovered/Not Resolved]
